FAERS Safety Report 12530762 (Version 1)
Quarter: 2016Q3

REPORT INFORMATION
  Report Type: Spontaneous
  Country: DE (occurrence: DE)
  Receive Date: 20160706
  Receipt Date: 20160706
  Transmission Date: 20161109
  Serious: Yes (Other)
  Sender: FDA-Public Use
  Company Number: DE-PFIZER INC-2016327774

PATIENT
  Sex: Female

DRUGS (1)
  1. LYRICA [Suspect]
     Active Substance: PREGABALIN
     Indication: TINNITUS
     Dosage: 20 GTT, 1X/DAY, IN THE EVENING

REACTIONS (5)
  - Product use issue [Unknown]
  - Breast cancer [Unknown]
  - Somnolence [Unknown]
  - Expired product administered [Unknown]
  - Wrong technique in product usage process [Unknown]
